FAERS Safety Report 9281163 (Version 1)
Quarter: 2013Q2

REPORT INFORMATION
  Report Type: Spontaneous
  Country: US (occurrence: None)
  Receive Date: 20130508
  Receipt Date: 20130508
  Transmission Date: 20140414
  Serious: Yes (Other)
  Sender: FDA-Public Use
  Company Number: None

PATIENT
  Age: 56 Year
  Sex: Male
  Weight: 86.2 kg

DRUGS (10)
  1. PROPOFOL [Suspect]
     Indication: SEDATION
     Dosage: 50MCG/KG/MIN  CONTINUOUS  IV
     Route: 042
     Dates: start: 20110313, end: 20110315
  2. LORAZEPAM [Concomitant]
  3. HYDROMORPHONE [Concomitant]
  4. VANCOMYCIN [Concomitant]
  5. CEFEPIME [Concomitant]
  6. DOCUSATE [Concomitant]
  7. SENNA [Concomitant]
  8. LANSOPRAZOLE [Concomitant]
  9. HEPARIN [Concomitant]
  10. INSULIN [Suspect]

REACTIONS (2)
  - Blood triglycerides increased [None]
  - Unevaluable event [None]
